FAERS Safety Report 11944999 (Version 3)
Quarter: 2016Q1

REPORT INFORMATION
  Report Type: Spontaneous
  Country: BR (occurrence: BR)
  Receive Date: 20160125
  Receipt Date: 20160225
  Transmission Date: 20160526
  Serious: Yes (Other)
  Sender: FDA-Public Use
  Company Number: PHHY2016BR008356

PATIENT
  Sex: Male
  Weight: 60 kg

DRUGS (3)
  1. RISPERIDONE. [Concomitant]
     Active Substance: RISPERIDONE
     Indication: INTELLECTUAL DISABILITY
     Dosage: 3 DF, QD
     Route: 048
  2. TRILEPTAL [Suspect]
     Active Substance: OXCARBAZEPINE
     Indication: NERVOUSNESS
     Dosage: 5 ML, BID (IN THE MORNING AND AT NIGHT)
     Route: 048
     Dates: start: 2014
  3. TRILEPTAL [Suspect]
     Active Substance: OXCARBAZEPINE
     Indication: INTELLECTUAL DISABILITY

REACTIONS (10)
  - Self injurious behaviour [Not Recovered/Not Resolved]
  - Haemorrhage [Not Recovered/Not Resolved]
  - Bite [Not Recovered/Not Resolved]
  - Aphasia [Not Recovered/Not Resolved]
  - Product use issue [Unknown]
  - Tremor [Not Recovered/Not Resolved]
  - Nervousness [Not Recovered/Not Resolved]
  - Asthenia [Not Recovered/Not Resolved]
  - Drug ineffective for unapproved indication [Not Recovered/Not Resolved]
  - Fear [Not Recovered/Not Resolved]
